FAERS Safety Report 7287997-X (Version None)
Quarter: 2011Q1

REPORT INFORMATION
  Report Type: 
  Country: None (occurrence: None)
  Receive Date: 20110211
  Receipt Date: 20110127
  Transmission Date: 20110831
  Serious: Yes (Hospitalization, Disabling)
  Sender: FDA-Public Use
  Company Number: PHHY2010US80816

PATIENT
  Sex: Female
  Weight: 150 kg

DRUGS (7)
  1. GLEEVEC [Suspect]
     Dosage: 400 MG, QD
     Route: 048
     Dates: end: 20070325
  2. PREMARIN [Concomitant]
     Dosage: 0.9 MG, UNK
  3. NEXIUM [Concomitant]
     Dosage: 40 MG, UNK
  4. GLEEVEC [Suspect]
     Indication: CHRONIC MYELOID LEUKAEMIA
     Dosage: 600 MG, QD
     Route: 048
  5. GLEEVEC [Suspect]
     Dosage: 200 MG, UNK
     Route: 048
     Dates: start: 20070410
  6. SYNTHROID [Concomitant]
     Dosage: 50 MG, UNK
  7. PREVACID [Concomitant]
     Dosage: 30 MG, UNK

REACTIONS (8)
  - MUSCLE SPASMS [None]
  - ASTHENIA [None]
  - PYREXIA [None]
  - DIARRHOEA [None]
  - NAUSEA [None]
  - PAIN [None]
  - LIVER DISORDER [None]
  - ILEUS [None]
